FAERS Safety Report 14789530 (Version 2)
Quarter: 2018Q2

REPORT INFORMATION
  Report Type: Spontaneous
  Country: US (occurrence: US)
  Receive Date: 20180423
  Receipt Date: 20180425
  Transmission Date: 20180711
  Serious: No
  Sender: FDA-Public Use
  Company Number: US-TEVA-820700ACC

PATIENT
  Sex: Female

DRUGS (6)
  1. REMODULIN [Suspect]
     Active Substance: TREPROSTINIL
     Indication: PULMONARY ARTERIAL HYPERTENSION
     Dosage: 0.02725 MICROGRAM/KG
     Route: 058
     Dates: start: 20170607
  2. REMODULIN [Suspect]
     Active Substance: TREPROSTINIL
     Dosage: 0.0455 MICROGRAM/KG
     Route: 058
     Dates: start: 20170817
  3. REMODULIN [Suspect]
     Active Substance: TREPROSTINIL
     Dosage: 0.121 MICROGRAM/KG
     Route: 058
  4. SIMVASTATIN. [Suspect]
     Active Substance: SIMVASTATIN
     Dates: end: 20170915
  5. REMODULIN [Suspect]
     Active Substance: TREPROSTINIL
     Dosage: 0.0425 MICROGRAM/KG
     Route: 058
  6. REMODULIN [Suspect]
     Active Substance: TREPROSTINIL
     Dosage: 0.039 MICROGRAM/KG
     Route: 058

REACTIONS (10)
  - Myalgia [Unknown]
  - Decreased appetite [Unknown]
  - Mineral supplementation [Unknown]
  - Infusion site haemorrhage [Unknown]
  - Pain in extremity [Unknown]
  - Pain [Unknown]
  - Infusion site pain [Unknown]
  - Weight decreased [Unknown]
  - Pain [Recovering/Resolving]
  - Diarrhoea [Unknown]
